FAERS Safety Report 13194648 (Version 2)
Quarter: 2017Q2

REPORT INFORMATION
  Report Type: Spontaneous
  Country: US (occurrence: US)
  Receive Date: 20170207
  Receipt Date: 20170427
  Transmission Date: 20170830
  Serious: No
  Sender: FDA-Public Use
  Company Number: US-JAZZ-2016-US-014642

PATIENT
  Sex: Female

DRUGS (15)
  1. PRIALT [Suspect]
     Active Substance: ZICONOTIDE ACETATE
     Dosage: 0.092  ?G QH
     Route: 037
  2. FENTANYL. [Suspect]
     Active Substance: FENTANYL
     Dosage: 216.708 ?G, QH
     Route: 037
  3. CLONIDINE. [Suspect]
     Active Substance: CLONIDINE
     Dosage: 5.273  ?G QH
     Route: 037
  4. FENTANYL. [Suspect]
     Active Substance: FENTANYL
     Indication: SPINAL PAIN
     Dosage: UNK ?G, UNK
     Route: 037
  5. PRIALT [Suspect]
     Active Substance: ZICONOTIDE ACETATE
     Dosage: 0.074 ?G, QH
     Route: 037
     Dates: start: 20151204
  6. CLONIDINE. [Suspect]
     Active Substance: CLONIDINE
     Dosage: 4.815 ?G, QH
     Route: 037
  7. CLONIDINE. [Suspect]
     Active Substance: CLONIDINE
     Dosage: 5.103 ?G, QH
     Route: 037
  8. FENTANYL. [Suspect]
     Active Substance: FENTANYL
     Dosage: 208.666 ?G, QH
     Route: 037
     Dates: start: 20151204
  9. FENTANYL. [Suspect]
     Active Substance: FENTANYL
     Dosage: 229.666 ?G, QH
     Route: 037
  10. PRIALT [Suspect]
     Active Substance: ZICONOTIDE ACETATE
     Indication: SPINAL PAIN
     Dosage: UNK ?G, QH
     Route: 037
  11. PRIALT [Suspect]
     Active Substance: ZICONOTIDE ACETATE
     Dosage: 0.081 ?G QH
     Route: 037
  12. CLONIDINE. [Suspect]
     Active Substance: CLONIDINE
     Dosage: 4.64  ?G QH
     Route: 037
     Dates: start: 20151204
  13. CLONIDINE. [Suspect]
     Active Substance: CLONIDINE
     Indication: SPINAL PAIN
     Dosage: UNK ?G, QH
     Route: 037
  14. FENTANYL. [Suspect]
     Active Substance: FENTANYL
     Dosage: 237.25 ?G, QH
     Route: 037
  15. PRIALT [Suspect]
     Active Substance: ZICONOTIDE ACETATE
     Dosage: 0.077 ?G, QH
     Route: 037

REACTIONS (3)
  - Purulent discharge [Unknown]
  - Pyrexia [Unknown]
  - Device issue [Unknown]
